FAERS Safety Report 10624847 (Version 2)
Quarter: 2014Q4

REPORT INFORMATION
  Report Type: Report from Study
  Country: BR (occurrence: BR)
  Receive Date: 20141204
  Receipt Date: 20141204
  Transmission Date: 20150529
  Serious: Yes (Other)
  Sender: FDA-Public Use
  Company Number: BR-BRISTOL-MYERS SQUIBB COMPANY-21581889

PATIENT
  Age: 59 Year
  Sex: Female
  Weight: 52 kg

DRUGS (2)
  1. DOXYCYCLINE. [Suspect]
     Active Substance: DOXYCYCLINE
     Dosage: LAST DOSE 25NOV14
     Dates: start: 201312
  2. ERBITUX [Suspect]
     Active Substance: CETUXIMAB
     Indication: COLORECTAL CANCER METASTATIC
     Dates: start: 201312

REACTIONS (7)
  - Acne [Not Recovered/Not Resolved]
  - Renal disorder [Unknown]
  - Secretion discharge [Not Recovered/Not Resolved]
  - Erythema [Unknown]
  - Eye allergy [Not Recovered/Not Resolved]
  - Hydronephrosis [Unknown]
  - Gastritis [Unknown]

NARRATIVE: CASE EVENT DATE: 201312
